FAERS Safety Report 20575898 (Version 1)
Quarter: 2022Q1

REPORT INFORMATION
  Report Type: Other
  Country: US (occurrence: None)
  Receive Date: 20220310
  Receipt Date: 20220310
  Transmission Date: 20220423
  Serious: Yes (Other)
  Sender: FDA-Public Use
  Company Number: US-ROCHE-3038445

PATIENT
  Sex: Male
  Weight: 127 kg

DRUGS (16)
  1. ESBRIET [Suspect]
     Active Substance: PIRFENIDONE
     Indication: Interstitial lung disease
     Dosage: TAKE 1 CAPSULE BY MOUTH TWO TIMES A DAY
     Route: 048
     Dates: start: 20220221
  2. ASPIRIN [Concomitant]
     Active Substance: ASPIRIN
  3. LIPITOR [Concomitant]
     Active Substance: ATORVASTATIN CALCIUM
  4. ZEBETA [Concomitant]
     Active Substance: BISOPROLOL FUMARATE
  5. VITAMINS [Concomitant]
     Active Substance: VITAMINS
  6. DOCUSATE SODIUM [Concomitant]
     Active Substance: DOCUSATE SODIUM
  7. BYETTA [Concomitant]
     Active Substance: EXENATIDE
  8. FERGON [Concomitant]
     Active Substance: FERROUS GLUCONATE
  9. BREO ELLIPTA [Concomitant]
     Active Substance: FLUTICASONE FUROATE\VILANTEROL TRIFENATATE
  10. FOLVITE [Concomitant]
     Active Substance: FOLIC ACID
  11. GLUCOTROL [Concomitant]
     Active Substance: GLIPIZIDE
  12. HALOBETASOL PROPIONATE [Concomitant]
     Active Substance: HALOBETASOL PROPIONATE
  13. IBUPROFEN [Concomitant]
     Active Substance: IBUPROFEN
  14. LISINOPRIL [Concomitant]
     Active Substance: LISINOPRIL
  15. LOPERAMIN [Concomitant]
  16. PREDNISONE [Concomitant]
     Active Substance: PREDNISONE

REACTIONS (2)
  - Hypoxia [Unknown]
  - Off label use [Unknown]
